FAERS Safety Report 24928877 (Version 2)
Quarter: 2025Q1

REPORT INFORMATION
  Report Type: Spontaneous
  Country: US (occurrence: None)
  Receive Date: 20250205
  Receipt Date: 20250319
  Transmission Date: 20250409
  Serious: No
  Sender: NOBELPHARMA AMERICA, LLC
  Company Number: US-Nobelpharma America, LLC-NPA-2025-00145

PATIENT
  Sex: Male

DRUGS (1)
  1. HYFTOR [Suspect]
     Active Substance: SIROLIMUS
     Indication: Tuberous sclerosis complex
     Dosage: APPLY 1 APPLICATION TOPICALLY 2 TIMES A DAY AS DIRECTED
     Route: 061
     Dates: start: 20240515

REACTIONS (2)
  - Pruritus [Unknown]
  - Drug ineffective [Unknown]
